FAERS Safety Report 10227147 (Version 1)
Quarter: 2014Q2

REPORT INFORMATION
  Report Type: Spontaneous
  Country: DK (occurrence: None)
  Receive Date: 20140606
  Receipt Date: 20140606
  Transmission Date: 20141212
  Serious: Yes (Disabling)
  Sender: FDA-Public Use
  Company Number: HX-PM-DK-140400003

PATIENT
  Age: 68 Year
  Sex: Male
  Weight: 80 kg

DRUGS (3)
  1. HEXVIX/CYSVIEW (HEXAMINOLEVULINATE HYDROCHLORIDE) [Suspect]
     Indication: BLADDER CANCER
     Route: 043
     Dates: start: 20131129
  2. HEXVIX/CYSVIEW (HEXAMINOLEVULINATE HYDROCHLORIDE) [Suspect]
     Indication: NEOPLASM RECURRENCE
     Route: 043
     Dates: start: 20131129
  3. BACILLE CALMETTE GUERIN [Suspect]
     Indication: BLADDER CANCER
     Route: 043
     Dates: start: 20130506, end: 20130613

REACTIONS (4)
  - Arthritis reactive [None]
  - Cystitis noninfective [None]
  - Gait disturbance [None]
  - Post procedural complication [None]
